FAERS Safety Report 10019627 (Version 1)
Quarter: 2014Q1

REPORT INFORMATION
  Report Type: Spontaneous
  Country: AU (occurrence: AU)
  Receive Date: 20140318
  Receipt Date: 20140318
  Transmission Date: 20141002
  Serious: Yes (Hospitalization, Other)
  Sender: FDA-Public Use
  Company Number: AU-PFIZER INC-2014076968

PATIENT
  Sex: Male

DRUGS (1)
  1. CHAMPIX [Suspect]
     Dosage: UNK
     Dates: start: 2010

REACTIONS (8)
  - Coma [Recovered/Resolved]
  - Apparent death [Recovered/Resolved]
  - Brain hypoxia [Recovered/Resolved]
  - Pneumonia [Unknown]
  - Nightmare [Unknown]
  - Fatigue [Unknown]
  - Feeling abnormal [Unknown]
  - Amnesia [Unknown]
